FAERS Safety Report 7392712-5 (Version None)
Quarter: 2011Q2

REPORT INFORMATION
  Report Type: 
  Country: None (occurrence: None)
  Receive Date: 20110404
  Receipt Date: 20110323
  Transmission Date: 20111010
  Serious: Yes (Hospitalization)
  Sender: FDA-Public Use
  Company Number: GB-PFIZER INC-2011064356

PATIENT
  Age: 79 Year
  Sex: Female

DRUGS (2)
  1. CYTARABINE [Suspect]
     Dosage: UNK
     Dates: start: 20100510, end: 20100519
  2. GEMTUZUMAB OZOGAMICIN [Suspect]
     Dosage: UNK
     Dates: start: 20100510, end: 20100519

REACTIONS (1)
  - CELLULITIS [None]
